FAERS Safety Report 9630607 (Version 1)
Quarter: 2013Q4

REPORT INFORMATION
  Report Type: Spontaneous
  Country: US (occurrence: None)
  Receive Date: 20131015
  Receipt Date: 20131015
  Transmission Date: 20140711
  Serious: Yes (Death)
  Sender: FDA-Public Use
  Company Number: 2013AP008654

PATIENT
  Age: 74 Year
  Sex: Female

DRUGS (6)
  1. AMLODIPINE BESYLATE [Suspect]
     Route: 048
  2. ALLOPURINOL [Suspect]
     Route: 048
  3. LAMOTRIGINE [Suspect]
     Route: 048
  4. FUROSEMIDE [Suspect]
     Route: 048
  5. METHYLPREDNISOLONE [Suspect]
     Route: 048
  6. LEVOTHYROXINE [Suspect]

REACTIONS (1)
  - Completed suicide [None]
